FAERS Safety Report 17169477 (Version 2)
Quarter: 2020Q1

REPORT INFORMATION
  Report Type: Spontaneous
  Country: US (occurrence: US)
  Receive Date: 20191218
  Receipt Date: 20200127
  Transmission Date: 20200409
  Serious: No
  Sender: FDA-Public Use
  Company Number: US-ACTELION-A-NJ2019-199128

PATIENT
  Age: 80 Year
  Sex: Female

DRUGS (2)
  1. OPSUMIT [Suspect]
     Active Substance: MACITENTAN
     Indication: PULMONARY ARTERIAL HYPERTENSION
     Dosage: 10 MG, QD
     Route: 048
     Dates: start: 20191118
  2. TADALAFIL. [Concomitant]
     Active Substance: TADALAFIL
     Dosage: 20 MG, BID

REACTIONS (7)
  - Dyspnoea [Unknown]
  - Rhinorrhoea [Unknown]
  - Dizziness [Unknown]
  - Insomnia [Not Recovered/Not Resolved]
  - Headache [Unknown]
  - Fatigue [Unknown]
  - Nasal congestion [Unknown]

NARRATIVE: CASE EVENT DATE: 201911
